FAERS Safety Report 5958858-0 (Version None)
Quarter: 2008Q4

REPORT INFORMATION
  Report Type: 
  Country: None (occurrence: None)
  Receive Date: 20081119
  Receipt Date: 20081113
  Transmission Date: 20090506
  Serious: Yes (Hospitalization)
  Sender: FDA-Public Use
  Company Number: BE-AMGEN-UK312001

PATIENT
  Sex: Male

DRUGS (13)
  1. PANITUMUMAB [Suspect]
     Indication: SQUAMOUS CELL CARCINOMA
     Route: 042
     Dates: start: 20080724, end: 20080724
  2. FLUCONAZOLE [Concomitant]
     Route: 065
  3. PERFALGAN [Concomitant]
     Route: 042
  4. SOLU-MEDROL [Concomitant]
     Route: 042
  5. GLUCOSE INJECTION [Concomitant]
     Route: 042
  6. POTASSIUM CHLORIDE [Concomitant]
     Route: 042
  7. MAGNESIUM SULFATE [Concomitant]
     Route: 042
  8. DOCETAXEL [Concomitant]
     Route: 042
     Dates: start: 20080925, end: 20080925
  9. CISPLATIN [Concomitant]
     Route: 042
     Dates: start: 20080925, end: 20080925
  10. DUPHALAC [Concomitant]
  11. SODIUM CHLORIDE [Concomitant]
     Route: 042
     Dates: start: 20081031, end: 20081101
  12. ZANTAC [Concomitant]
     Route: 042
  13. BACITRACIN/NEOMYCIN SULFATE [Concomitant]

REACTIONS (3)
  - DEHYDRATION [None]
  - FEBRILE NEUTROPENIA [None]
  - SKIN TOXICITY [None]
